FAERS Safety Report 25880856 (Version 1)
Quarter: 2025Q4

REPORT INFORMATION
  Report Type: Other
  Country: GB (occurrence: GB)
  Receive Date: 20251004
  Receipt Date: 20251004
  Transmission Date: 20260118
  Serious: Yes (Disabling, Other)
  Sender: MACLEODS
  Company Number: None

PATIENT

DRUGS (3)
  1. RIVAROXABAN [Suspect]
     Active Substance: RIVAROXABAN
     Indication: May-Thurner syndrome
     Dosage: 20MG A DAY
     Route: 065
     Dates: start: 20141010, end: 202506
  2. RIVAROXABAN [Suspect]
     Active Substance: RIVAROXABAN
     Indication: Thrombosis
  3. RIVAROXABAN [Suspect]
     Active Substance: RIVAROXABAN
     Indication: May-Thurner syndrome

REACTIONS (6)
  - Arthralgia [Recovered/Resolved with Sequelae]
  - Vitamin D deficiency [Unknown]
  - Pernicious anaemia [Unknown]
  - Musculoskeletal stiffness [Unknown]
  - Myalgia [Unknown]
  - Movement disorder [Unknown]

NARRATIVE: CASE EVENT DATE: 20141019
